FAERS Safety Report 8512672-0 (Version None)
Quarter: 2012Q3

REPORT INFORMATION
  Report Type: 
  Country: None (occurrence: None)
  Receive Date: 20120716
  Receipt Date: 20120706
  Transmission Date: 20120928
  Serious: Yes (Hospitalization, Other)
  Sender: FDA-Public Use
  Company Number: FR-PFIZER INC-2012167841

PATIENT
  Age: 61 Year
  Sex: Female

DRUGS (17)
  1. NEXIUM [Concomitant]
  2. AMLODIPINE BESYLATE [Concomitant]
  3. TRAMADOL HCL [Concomitant]
  4. CALCIUM CARBONATE [Concomitant]
  5. NOVORAPID [Suspect]
     Indication: DIABETES MELLITUS
     Dosage: UNK
     Route: 058
     Dates: start: 20120123, end: 20120510
  6. ZOCOR [Concomitant]
  7. LEVOTHYROXINE SODIUM [Concomitant]
  8. CELLCEPT [Suspect]
     Indication: PEMPHIGUS
     Dosage: 500 MG, DAILY
     Route: 048
     Dates: start: 20120418, end: 20120419
  9. ALENDRONIC ACID [Concomitant]
  10. POTASSIUM CHLORIDE [Concomitant]
  11. ALDACTONE [Concomitant]
  12. ASPIRIN [Concomitant]
  13. PREDNISONE TAB [Concomitant]
  14. RAMIPRIL [Suspect]
     Indication: HYPERTENSION
     Dosage: UNK
     Route: 048
     Dates: start: 20030101, end: 20120503
  15. LEVEMIR [Suspect]
     Indication: DIABETES MELLITUS
     Dosage: UNK
     Route: 058
     Dates: start: 20120123, end: 20120510
  16. METFORMIN [Concomitant]
  17. BISOPROLOL [Concomitant]

REACTIONS (3)
  - FACE OEDEMA [None]
  - OEDEMA PERIPHERAL [None]
  - TACHYCARDIA [None]
